FAERS Safety Report 20478514 (Version 1)
Quarter: 2022Q1

REPORT INFORMATION
  Report Type: Spontaneous
  Country: NL (occurrence: NL)
  Receive Date: 20220216
  Receipt Date: 20220216
  Transmission Date: 20220423
  Serious: Yes (Other)
  Sender: FDA-Public Use
  Company Number: NL-LRB-00330181

PATIENT
  Sex: Male
  Weight: 82 kg

DRUGS (1)
  1. OMEPRAZOLE [Suspect]
     Active Substance: OMEPRAZOLE
     Indication: Helicobacter gastritis
     Dosage: 20 MILLIGRAM, ONCE A DAY
     Route: 048
     Dates: start: 2008

REACTIONS (2)
  - Erectile dysfunction [Recovered/Resolved with Sequelae]
  - Constipation [Recovered/Resolved with Sequelae]
